FAERS Safety Report 9431235 (Version 2)
Quarter: 2013Q3

REPORT INFORMATION
  Report Type: Spontaneous
  Country: IT (occurrence: IT)
  Receive Date: 20130730
  Receipt Date: 20130809
  Transmission Date: 20140515
  Serious: Yes (Other)
  Sender: FDA-Public Use
  Company Number: IT-ASTRAZENECA-2013SE55767

PATIENT
  Age: 18970 Day
  Sex: Female

DRUGS (5)
  1. SEROQUEL [Suspect]
     Indication: PSYCHOTIC DISORDER
     Route: 048
     Dates: start: 20130424, end: 20130424
  2. SEROQUEL [Suspect]
     Indication: PSYCHOTIC DISORDER
     Route: 048
     Dates: start: 20130424, end: 20130424
  3. EN [Suspect]
     Indication: DEPRESSION
     Dosage: 1 MG/ML SOLUTION FOR ORAL DROPS, 1.7 MG, ONCE/SINGLE ADMINISTRATION
     Route: 048
     Dates: start: 20130424, end: 20130424
  4. MINIAS [Suspect]
     Indication: DEPRESSION
     Dosage: 2.5MG/ML SOLUTION FOR ORAL DROPS, 9 MG, ONCE/SINGLE ADMINISTRATION
     Route: 048
     Dates: start: 20130424, end: 20130424
  5. TRITTICO [Suspect]
     Indication: DEPRESSION
     Route: 048
     Dates: start: 20130424, end: 20130424

REACTIONS (2)
  - Overdose [Unknown]
  - Confusional state [Recovering/Resolving]
